FAERS Safety Report 6899066-9 (Version None)
Quarter: 2010Q3

REPORT INFORMATION
  Report Type: 
  Country: None (occurrence: None)
  Receive Date: 20100802
  Receipt Date: 20071227
  Transmission Date: 20110219
  Serious: No
  Sender: FDA-Public Use
  Company Number: US-PFIZER INC-2007108870

PATIENT
  Sex: Female
  Weight: 70.76 kg

DRUGS (7)
  1. LYRICA [Suspect]
     Indication: FIBROMYALGIA
     Route: 048
     Dates: start: 20071005
  2. CYCLOSPORINE [Concomitant]
  3. ALL OTHER THERAPEUTIC PRODUCTS [Concomitant]
  4. SUMATRIPTAN [Concomitant]
  5. LEVOTHYROXINE SODIUM [Concomitant]
  6. AMBIEN [Concomitant]
  7. VITAMIN D [Concomitant]

REACTIONS (3)
  - DRY EYE [None]
  - PAIN [None]
  - VISION BLURRED [None]
